FAERS Safety Report 7549310-X (Version None)
Quarter: 2011Q2

REPORT INFORMATION
  Report Type: 
  Country: None (occurrence: None)
  Receive Date: 20110615
  Receipt Date: 20020826
  Transmission Date: 20111010
  Serious: Yes (Death)
  Sender: FDA-Public Use
  Company Number: PHBS2002VE10271

PATIENT
  Age: 67 Year
  Sex: Male

DRUGS (4)
  1. MORPHINE [Concomitant]
  2. OXYCONTIN [Concomitant]
     Dosage: 40 MG, QD
     Route: 048
  3. NOVALCINA [Concomitant]
  4. DIOVAN [Suspect]
     Indication: HYPERTENSION
     Dosage: 160 MG, QD
     Route: 048
     Dates: start: 20020101, end: 20020531

REACTIONS (2)
  - METASTASES TO CENTRAL NERVOUS SYSTEM [None]
  - PROSTATE CANCER [None]
